FAERS Safety Report 9443045 (Version 1)
Quarter: 2013Q3

REPORT INFORMATION
  Report Type: Spontaneous
  Country: US (occurrence: US)
  Receive Date: 20130806
  Receipt Date: 20130806
  Transmission Date: 20140515
  Serious: Yes (Hospitalization, Other)
  Sender: FDA-Public Use
  Company Number: US-B.I. PHARMACEUTICALS,INC./RIDGEFIELD-2013-BI-23073BP

PATIENT
  Age: 89 Year
  Sex: Female

DRUGS (1)
  1. SPIRIVA [Suspect]
     Indication: CHRONIC OBSTRUCTIVE PULMONARY DISEASE
     Dosage: 18 MCG
     Route: 055
     Dates: start: 2004, end: 201306

REACTIONS (4)
  - Cerebrovascular accident [Recovered/Resolved with Sequelae]
  - Pneumonia [Recovered/Resolved]
  - Brain neoplasm [Not Recovered/Not Resolved]
  - Hemiplegia [Not Recovered/Not Resolved]
